FAERS Safety Report 5748108-2 (Version None)
Quarter: 2008Q2

REPORT INFORMATION
  Report Type: 
  Country: None (occurrence: None)
  Receive Date: 20080521
  Receipt Date: 20071221
  Transmission Date: 20081010
  Serious: Yes (Death, Life-Threatening, Hospitalization)
  Sender: FDA-Public Use
  Company Number: WAES 0712BRA00050

PATIENT
  Age: 54 Year
  Sex: Female

DRUGS (7)
  1. COZAAR [Suspect]
     Indication: CARDIAC FAILURE
     Dosage: PO
     Route: 048
     Dates: start: 20040903, end: 20071108
  2. AMIODARONE HCL [Concomitant]
  3. DIGOXIN [Concomitant]
  4. FUROSEMIDE [Concomitant]
  5. LEVOTHYROXINE SODIUM [Concomitant]
  6. PANTOPRAZOLE [Concomitant]
  7. SPIRONOLACTONE [Concomitant]

REACTIONS (14)
  - ASTHENIA [None]
  - CARDIOGENIC SHOCK [None]
  - GENERALISED OEDEMA [None]
  - HAEMODIALYSIS [None]
  - HEPATIC CONGESTION [None]
  - HYPOKALAEMIA [None]
  - HYPOTENSION [None]
  - PLATELET COUNT DECREASED [None]
  - PROTHROMBIN TIME SHORTENED [None]
  - RENAL IMPAIRMENT [None]
  - RESPIRATORY RATE INCREASED [None]
  - RESPIRATORY TRACT INFECTION [None]
  - SEPTIC SHOCK [None]
  - VENTRICULAR TACHYCARDIA [None]
